FAERS Safety Report 6244102-6 (Version None)
Quarter: 2009Q2

REPORT INFORMATION
  Report Type: 
  Country: None (occurrence: None)
  Receive Date: 20090623
  Receipt Date: 20090623
  Transmission Date: 20091009
  Serious: Yes (Hospitalization)
  Sender: FDA-Public Use
  Company Number: None

PATIENT
  Sex: Female
  Weight: 132 kg

DRUGS (1)
  1. GEMCITABINE HCL [Suspect]
     Dosage: 1600 MG

REACTIONS (1)
  - INTERSTITIAL LUNG DISEASE [None]
